FAERS Safety Report 18869474 (Version 1)
Quarter: 2021Q1

REPORT INFORMATION
  Report Type: Report from Study
  Country: FI (occurrence: FI)
  Receive Date: 20210209
  Receipt Date: 20210209
  Transmission Date: 20210420
  Serious: Yes (Hospitalization)
  Sender: FDA-Public Use
  Company Number: FI-MYLANLABS-2021M1007869

PATIENT
  Sex: Female

DRUGS (6)
  1. LEPONEX [Suspect]
     Active Substance: CLOZAPINE
     Dosage: 350?400MG, QD
  2. LANSOPRAZOLE. [Concomitant]
     Active Substance: LANSOPRAZOLE
     Dosage: UNK
  3. LEPONEX [Suspect]
     Active Substance: CLOZAPINE
     Indication: PRODUCT USED FOR UNKNOWN INDICATION
     Dosage: 500?600MG, QD
  4. LEPONEX [Suspect]
     Active Substance: CLOZAPINE
     Dosage: 100+400MG, QD
  5. METFORMIN [Concomitant]
     Active Substance: METFORMIN HYDROCHLORIDE
     Dosage: UNK
     Dates: start: 2020
  6. PANTOPRAZOLE [Concomitant]
     Active Substance: PANTOPRAZOLE
     Dosage: UNK

REACTIONS (5)
  - Antipsychotic drug level increased [Recovered/Resolved]
  - Antipsychotic drug level decreased [Unknown]
  - Hospitalisation [Unknown]
  - Incorrect dose administered [Unknown]
  - Hypomania [Unknown]

NARRATIVE: CASE EVENT DATE: 2020
